FAERS Safety Report 8202568-6 (Version None)
Quarter: 2012Q1

REPORT INFORMATION
  Report Type: 
  Country: None (occurrence: None)
  Receive Date: 20120312
  Receipt Date: 20120305
  Transmission Date: 20120608
  Serious: Yes (Congenital Anomaly, Other)
  Sender: FDA-Public Use
  Company Number: PHHY2012CA019390

PATIENT
  Age: 4 Week
  Sex: Female

DRUGS (3)
  1. FOLIC ACID [Concomitant]
  2. HYDROXYCHLOROQUINE SULFATE [Suspect]
  3. METHOTREXATE [Suspect]

REACTIONS (5)
  - OCULAR DISCOMFORT [None]
  - ANTERIOR CHAMBER CLEAVAGE SYNDROME [None]
  - CORNEAL THICKENING [None]
  - CORNEAL OPACITY [None]
  - FOETAL EXPOSURE DURING PREGNANCY [None]
